FAERS Safety Report 17392303 (Version 3)
Quarter: 2020Q2

REPORT INFORMATION
  Report Type: Spontaneous
  Country: CA (occurrence: CA)
  Receive Date: 20200207
  Receipt Date: 20200601
  Transmission Date: 20200713
  Serious: Yes (Other)
  Sender: FDA-Public Use
  Company Number: CA-ALLERGAN-2004912US

PATIENT
  Sex: Female

DRUGS (17)
  1. CANDESARTAN CILEXETIL. [Suspect]
     Active Substance: CANDESARTAN CILEXETIL
     Indication: MIGRAINE
     Dosage: 4 MG
     Route: 065
  2. MOMETASONE [Concomitant]
     Active Substance: MOMETASONE
     Indication: MIGRAINE
     Dosage: 50 ?G
     Route: 065
  3. LORAZEPAM. [Concomitant]
     Active Substance: LORAZEPAM
     Indication: MIGRAINE
     Dosage: 1 MG
     Route: 065
  4. PURG ODAN [Concomitant]
     Active Substance: ANHYDROUS CITRIC ACID\MAGNESIUM OXIDE\SODIUM PICOSULFATE
     Indication: MIGRAINE
     Route: 065
  5. BETAHISTINE TEVA [Concomitant]
     Indication: MIGRAINE
     Dosage: 8 MG
     Route: 065
  6. CYPROHEPTADINE. [Suspect]
     Active Substance: CYPROHEPTADINE
     Indication: MIGRAINE
     Dosage: 4 MG
     Route: 065
  7. ALMOTRIPTAN. [Suspect]
     Active Substance: ALMOTRIPTAN
     Indication: MIGRAINE
     Dosage: 12.5 MG
     Route: 065
  8. RIZATRIPTAN BENZOATE. [Suspect]
     Active Substance: RIZATRIPTAN BENZOATE
     Indication: MIGRAINE
     Dosage: 10 MG
     Route: 065
  9. APO PANTOPRAZOLE [Concomitant]
     Indication: MIGRAINE
     Dosage: 40 MG
     Route: 065
  10. DEPO-MEDROL [Concomitant]
     Active Substance: METHYLPREDNISOLONE ACETATE
     Indication: MIGRAINE
     Route: 065
  11. CYCLOMEN [Concomitant]
     Active Substance: DANAZOL
     Indication: MIGRAINE
     Dosage: 50 MG
     Route: 065
  12. BOTULINUM TOXIN TYPE A UNK [Suspect]
     Active Substance: BOTULINUM TOXIN TYPE A
     Indication: MIGRAINE
     Dosage: UNK, SINGLE
     Route: 065
  13. APO AZITHROMYCIN [Concomitant]
     Active Substance: AZITHROMYCIN
     Indication: MIGRAINE
     Dosage: 250 MG
     Route: 065
  14. NOVO-FAMOTIDINE [Concomitant]
     Indication: MIGRAINE
     Dosage: 40 MG
     Route: 065
  15. MEMANTINE HCL - BP [Suspect]
     Active Substance: MEMANTINE
     Indication: MIGRAINE
     Dosage: 10 MG
     Route: 065
  16. GABAPENTIN. [Concomitant]
     Active Substance: GABAPENTIN
     Indication: MIGRAINE
     Route: 065
  17. ERYTHRO [Concomitant]
     Active Substance: ERYTHROMYCIN
     Indication: MIGRAINE
     Dosage: 250 MG
     Route: 065

REACTIONS (7)
  - Anaphylactic reaction [Recovered/Resolved]
  - Muscle spasms [Recovered/Resolved]
  - Product use in unapproved indication [Unknown]
  - Periorbital swelling [Recovered/Resolved]
  - Periorbital oedema [Recovered/Resolved]
  - Drug intolerance [Recovered/Resolved]
  - Drug ineffective for unapproved indication [Unknown]
